FAERS Safety Report 6682048-X (Version None)
Quarter: 2010Q2

REPORT INFORMATION
  Report Type: 
  Country: None (occurrence: None)
  Receive Date: 20100415
  Receipt Date: 20100408
  Transmission Date: 20101027
  Serious: Yes (Death, Other)
  Sender: FDA-Public Use
  Company Number: AU-BIOGENIDEC-2009BI036629

PATIENT
  Age: 54 Year
  Sex: Female

DRUGS (4)
  1. TYSABRI [Suspect]
     Indication: RELAPSING-REMITTING MULTIPLE SCLEROSIS
     Route: 042
     Dates: start: 20080806, end: 20091014
  2. INSULIN [Concomitant]
     Indication: TYPE 2 DIABETES MELLITUS
  3. CLONAZEPAM [Concomitant]
  4. MOTILIUM [Concomitant]

REACTIONS (4)
  - ADENOCARCINOMA PANCREAS [None]
  - BILE DUCT CANCER [None]
  - BILE DUCT OBSTRUCTION [None]
  - SMALL INTESTINE CARCINOMA METASTATIC [None]
